FAERS Safety Report 13449139 (Version 1)
Quarter: 2017Q2

REPORT INFORMATION
  Report Type: Spontaneous
  Country: FR (occurrence: FR)
  Receive Date: 20170417
  Receipt Date: 20170417
  Transmission Date: 20170830
  Serious: Yes (Hospitalization, Other)
  Sender: FDA-Public Use
  Company Number: FR-009507513-1612FRA005078

PATIENT
  Age: 62 Year
  Sex: Male
  Weight: 79.7 kg

DRUGS (10)
  1. INVANZ [Suspect]
     Active Substance: ERTAPENEM SODIUM
     Dosage: 1 G, UNK
     Route: 030
     Dates: start: 20161212, end: 20161219
  2. LASILIX [Concomitant]
     Active Substance: FUROSEMIDE
     Dosage: 1 TABLET, QD
     Route: 048
  3. AMLOR [Concomitant]
     Active Substance: AMLODIPINE BESYLATE
     Indication: HYPERTENSION
     Dosage: 1 TABLET, UNK
     Route: 048
  4. TAHOR [Concomitant]
     Active Substance: ATORVASTATIN CALCIUM
     Indication: DYSLIPIDAEMIA
     Dosage: 1 TABLET, QD
     Route: 048
  5. ONBREZ [Concomitant]
     Active Substance: INDACATEROL
     Indication: CHRONIC OBSTRUCTIVE PULMONARY DISEASE
     Dosage: 1 INHALATION, FREQUENCY: UNKNOWN
  6. KARDEGIC [Concomitant]
     Active Substance: ASPIRIN LYSINE
     Indication: CORONARY ARTERIAL STENT INSERTION
     Dosage: 1 TABLET, UNK
     Route: 048
  7. INVANZ [Suspect]
     Active Substance: ERTAPENEM SODIUM
     Indication: URINARY TRACT INFECTION BACTERIAL
     Dosage: 1 G, UNK
     Route: 030
     Dates: start: 20161130, end: 20161212
  8. PLAVIX [Concomitant]
     Active Substance: CLOPIDOGREL BISULFATE
     Dosage: 1 TABLET, UNK
     Route: 048
  9. EUPANTOL [Concomitant]
     Active Substance: PANTOPRAZOLE SODIUM
     Indication: GASTRITIS PROPHYLAXIS
     Dosage: 1 TABLET, UNK
     Route: 048
  10. SPIRIVA [Concomitant]
     Active Substance: TIOTROPIUM BROMIDE MONOHYDRATE
     Indication: CHRONIC OBSTRUCTIVE PULMONARY DISEASE
     Dosage: 1 DF PER INHALATION, UNK
     Route: 055

REACTIONS (8)
  - Drug prescribing error [Unknown]
  - Fall [Unknown]
  - Off label use [Unknown]
  - Asthenia [Unknown]
  - Depression [Unknown]
  - Cerebellar syndrome [Not Recovered/Not Resolved]
  - Vitamin B12 deficiency [Not Recovered/Not Resolved]
  - Intercepted drug prescribing error [Unknown]

NARRATIVE: CASE EVENT DATE: 20161210
